FAERS Safety Report 4730721-2 (Version None)
Quarter: 2005Q3

REPORT INFORMATION
  Report Type: 
  Country: None (occurrence: None)
  Receive Date: 20050801
  Receipt Date: 20050620
  Transmission Date: 20060218
  Serious: Yes (Other)
  Sender: FDA-Public Use
  Company Number: NL-BRISTOL-MYERS SQUIBB COMPANY-13015862

PATIENT
  Age: 40 Year
  Sex: Female

DRUGS (8)
  1. FUNGIZONE [Suspect]
     Indication: FUNGAL INFECTION
     Route: 048
     Dates: start: 20040409
  2. CARBAMAZEPINE [Interacting]
     Dates: start: 20020527
  3. PAROXETINE HCL [Interacting]
     Dates: start: 20020917
  4. COMBIVENT [Concomitant]
     Dates: start: 20040711
  5. DICLOFENAC SODIUM [Concomitant]
     Dates: start: 20050509
  6. BROMAZEPAM [Concomitant]
     Dates: start: 20010428
  7. PANTOPRAZOLE SODIUM [Concomitant]
     Dates: start: 20020605
  8. HYDROCORTISONE + MICONAZOLE NITRATE [Concomitant]
     Dosage: ^CREMOR MICONAZOLI ET HYDROCORTISONI^, HYDROCORTISONE 10 G/ MICONAZOLE 20 MG
     Dates: start: 20050524

REACTIONS (1)
  - PETIT MAL EPILEPSY [None]
